FAERS Safety Report 7707222-2 (Version None)
Quarter: 2011Q3

REPORT INFORMATION
  Report Type: 
  Country: None (occurrence: None)
  Receive Date: 20110824
  Receipt Date: 20110810
  Transmission Date: 20111222
  Serious: Yes (Other)
  Sender: FDA-Public Use
  Company Number: PHHY2011BR72897

PATIENT
  Sex: Female

DRUGS (4)
  1. NIFEDIPINE [Concomitant]
  2. DIOVAN HCT [Suspect]
     Dosage: 320 MG OF VALS AND 12.5 MG OF HYD
  3. BENICAR [Concomitant]
  4. COMBIGAN [Concomitant]
     Indication: GLAUCOMA
     Dosage: 10 MG, BID

REACTIONS (2)
  - GLAUCOMA [None]
  - BLOOD PRESSURE INADEQUATELY CONTROLLED [None]
